FAERS Safety Report 4273176-7 (Version None)
Quarter: 2004Q1

REPORT INFORMATION
  Report Type: 
  Country: None (occurrence: None)
  Receive Date: 20040116
  Receipt Date: 20031205
  Transmission Date: 20041129
  Serious: Yes (Life-Threatening, Hospitalization, Other)
  Sender: FDA-Public Use
  Company Number: WAES 0312POL00006

PATIENT
  Age: 87 Year
  Sex: Female
  Weight: 85 kg

DRUGS (12)
  1. ASPIRIN [Concomitant]
     Indication: CORONARY ARTERY DISEASE
     Route: 048
     Dates: start: 20031119
  2. BISOPROLOL FUMARATE [Concomitant]
     Indication: HYPERTENSION
     Route: 048
     Dates: start: 20031119
  3. BISOPROLOL FUMARATE [Concomitant]
     Indication: CORONARY ARTERY DISEASE
     Route: 048
     Dates: start: 20031119
  4. FURAZIDINE [Concomitant]
     Indication: BACTERIURIA
     Route: 048
     Dates: start: 20031128
  5. INDAPAMIDE [Concomitant]
     Indication: HYPERTENSION
     Route: 048
     Dates: start: 20031119
  6. LACIDIPINE [Concomitant]
     Indication: HYPERTENSION
     Route: 048
     Dates: start: 20031119
  7. LACIDIPINE [Concomitant]
     Indication: CORONARY ARTERY DISEASE
     Route: 048
     Dates: start: 20031119
  8. PIRACETAM [Concomitant]
     Indication: CEREBRAL INFARCTION
     Route: 048
     Dates: start: 20031121
  9. ZOCOR [Suspect]
     Indication: HYPERLIPIDAEMIA
     Route: 048
     Dates: start: 20031101, end: 20031129
  10. THIETHYLPERAZINE MALEATE [Concomitant]
     Indication: DIZZINESS
     Route: 048
     Dates: start: 20031121
  11. VINPOCETINE [Concomitant]
     Indication: DIZZINESS
     Route: 048
     Dates: start: 20031119
  12. VINPOCETINE [Concomitant]
     Indication: CEREBRAL INFARCTION
     Route: 048
     Dates: start: 20031119

REACTIONS (8)
  - ALANINE AMINOTRANSFERASE INCREASED [None]
  - ASPARTATE AMINOTRANSFERASE INCREASED [None]
  - ATRIAL FIBRILLATION [None]
  - BLOOD GLUCOSE INCREASED [None]
  - JAUNDICE [None]
  - RENAL FAILURE [None]
  - RHABDOMYOLYSIS [None]
  - SOMNOLENCE [None]
